FAERS Safety Report 26074940 (Version 1)
Quarter: 2025Q4

REPORT INFORMATION
  Report Type: Spontaneous
  Country: CN (occurrence: CN)
  Receive Date: 20251121
  Receipt Date: 20251121
  Transmission Date: 20260117
  Serious: Yes (Other)
  Sender: RANBAXY
  Company Number: CN-SUN PHARMACEUTICAL INDUSTRIES INC-2025R1-537119

PATIENT
  Age: 55 Year
  Sex: Female

DRUGS (5)
  1. DECITABINE [Suspect]
     Active Substance: DECITABINE
     Indication: Chemotherapy
     Dosage: 10 MILLIGRAM, DAYS 1?5
     Route: 065
     Dates: start: 20211105
  2. LENALIDOMIDE [Suspect]
     Active Substance: LENALIDOMIDE
     Indication: Chemotherapy
     Dosage: 25 MILLIGRAM
     Route: 065
     Dates: start: 20211105
  3. DOXORUBICIN HYDROCHLORIDE [Suspect]
     Active Substance: DOXORUBICIN HYDROCHLORIDE
     Indication: Chemotherapy
     Dosage: 60 MILLIGRAM, DAY 1
     Route: 065
     Dates: start: 20211105
  4. PACLITAXEL [Suspect]
     Active Substance: PACLITAXEL
     Indication: Chemotherapy
     Dosage: 0.4 GRAM, DAY 5
     Route: 065
     Dates: start: 20211105
  5. ZANUBRUTINIB [Suspect]
     Active Substance: ZANUBRUTINIB
     Indication: Chemotherapy
     Dosage: 160 MILLIGRAM, BID, DAYS 1?14
     Route: 048
     Dates: start: 20211105

REACTIONS (3)
  - Myelosuppression [Unknown]
  - Skin ulcer [Unknown]
  - Purulence [Unknown]
